FAERS Safety Report 17557552 (Version 1)
Quarter: 2020Q1

REPORT INFORMATION
  Report Type: Spontaneous
  Country: FR (occurrence: FR)
  Receive Date: 20200318
  Receipt Date: 20200318
  Transmission Date: 20200409
  Serious: Yes (Other)
  Sender: FDA-Public Use
  Company Number: FR-TEVA-2020-FR-1203712

PATIENT

DRUGS (3)
  1. MORPHINE [Interacting]
     Active Substance: MORPHINE
     Route: 065
  2. LANSOPRAZOLE. [Suspect]
     Active Substance: LANSOPRAZOLE
     Route: 065
  3. LOPERAMIDE [Interacting]
     Active Substance: LOPERAMIDE
     Route: 065

REACTIONS (4)
  - Drug interaction [Unknown]
  - Urinary retention [Unknown]
  - Altered state of consciousness [Unknown]
  - Self-medication [Unknown]
